FAERS Safety Report 12282668 (Version 2)
Quarter: 2016Q2

REPORT INFORMATION
  Report Type: Spontaneous
  Country: CA (occurrence: CA)
  Receive Date: 20160419
  Receipt Date: 20160504
  Transmission Date: 20160815
  Serious: Yes (Other)
  Sender: FDA-Public Use
  Company Number: CA-GILEAD-2016-0208492

PATIENT
  Age: 47 Year
  Sex: Male
  Weight: 70 kg

DRUGS (12)
  1. LOXAPINE. [Concomitant]
     Active Substance: LOXAPINE
  2. TENOFOVIR ALAFENAMIDE [Concomitant]
     Active Substance: TENOFOVIR ALAFENAMIDE
  3. ESCITALOPRAM [Concomitant]
     Active Substance: ESCITALOPRAM OXALATE
  4. OLANZAPINE. [Concomitant]
     Active Substance: OLANZAPINE
  5. HARVONI [Suspect]
     Active Substance: LEDIPASVIR\SOFOSBUVIR
     Indication: PRODUCT USED FOR UNKNOWN INDICATION
     Dosage: 1 DF, QD
     Route: 048
  6. LATANOPROST. [Concomitant]
     Active Substance: LATANOPROST
  7. MULTIVITAMINES AND MINERALS [Concomitant]
  8. KIVEXA [Concomitant]
     Active Substance: ABACAVIR SULFATE\LAMIVUDINE
  9. RITONAVIR. [Concomitant]
     Active Substance: RITONAVIR
  10. ATAZANAVIR [Concomitant]
     Active Substance: ATAZANAVIR
  11. CLONAZEPAM. [Concomitant]
     Active Substance: CLONAZEPAM
  12. BENZTROPINE [Concomitant]
     Active Substance: BENZTROPINE

REACTIONS (7)
  - Hypophosphataemia [Unknown]
  - Nephropathy toxic [Unknown]
  - Glycosuria [Unknown]
  - Drug interaction [Unknown]
  - Proteinuria [Unknown]
  - Urine albumin/creatinine ratio increased [Unknown]
  - Glomerular filtration rate decreased [Unknown]
